FAERS Safety Report 15602907 (Version 2)
Quarter: 2018Q4

REPORT INFORMATION
  Report Type: Spontaneous
  Country: CO (occurrence: CO)
  Receive Date: 20181109
  Receipt Date: 20181110
  Transmission Date: 20190205
  Serious: Yes (Other)
  Sender: FDA-Public Use
  Company Number: CO-ABBVIE-18S-036-2549944-00

PATIENT

DRUGS (1)
  1. SURVANTA [Suspect]
     Active Substance: BERACTANT
     Indication: NEONATAL RESPIRATORY DISTRESS SYNDROME
     Route: 039
     Dates: start: 20181102

REACTIONS (4)
  - Balance disorder [Recovering/Resolving]
  - Liquid product physical issue [Unknown]
  - Airway peak pressure increased [Recovering/Resolving]
  - Device occlusion [Recovered/Resolved]

NARRATIVE: CASE EVENT DATE: 20181102
